FAERS Safety Report 11282568 (Version 1)
Quarter: 2015Q3

REPORT INFORMATION
  Report Type: Spontaneous
  Country: US (occurrence: None)
  Receive Date: 20150716
  Receipt Date: 20150716
  Transmission Date: 20151125
  Serious: Yes (Other)
  Sender: FDA-Public Use
  Company Number: PL-AE15-000325

PATIENT
  Age: 55 Year
  Sex: Male

DRUGS (2)
  1. CLEAR EYES REDNESS RELIEF [Suspect]
     Active Substance: GLYCERIN\NAPHAZOLINE HYDROCHLORIDE
     Indication: OCULAR HYPERAEMIA
     Dosage: OTIC
     Dates: start: 201406, end: 20150120
  2. IBUPROFEN. [Concomitant]
     Active Substance: IBUPROFEN

REACTIONS (5)
  - Facial pain [None]
  - Sinus headache [None]
  - Cyst [None]
  - Gingival pain [None]
  - Eye disorder [None]

NARRATIVE: CASE EVENT DATE: 20150120
